FAERS Safety Report 7280394-2 (Version None)
Quarter: 2011Q1

REPORT INFORMATION
  Report Type: 
  Country: None (occurrence: None)
  Receive Date: 20110208
  Receipt Date: 20110127
  Transmission Date: 20110831
  Serious: Yes (Hospitalization)
  Sender: FDA-Public Use
  Company Number: US-ELI_LILLY_AND_COMPANY-US201101007437

PATIENT
  Sex: Male

DRUGS (2)
  1. HUMALOG MIX 75/25 [Suspect]
     Indication: DIABETES MELLITUS
     Dosage: 150 U, 2/D
     Dates: start: 19960101
  2. HUMALOG [Suspect]
     Indication: DIABETES MELLITUS
     Dosage: 50 U, 2/D
     Dates: start: 19960101

REACTIONS (4)
  - BLOOD GLUCOSE INCREASED [None]
  - ULCER HAEMORRHAGE [None]
  - VISUAL ACUITY REDUCED [None]
  - DRUG INEFFECTIVE [None]
